FAERS Safety Report 6158885-7 (Version None)
Quarter: 2009Q2

REPORT INFORMATION
  Report Type: 
  Country: None (occurrence: None)
  Receive Date: 20090417
  Receipt Date: 20090406
  Transmission Date: 20091009
  Serious: Yes (Hospitalization, Other)
  Sender: FDA-Public Use
  Company Number: GB-JNJFOC-20090302157

PATIENT
  Age: 70 Year
  Sex: Female
  Weight: 63 kg

DRUGS (10)
  1. REMICADE [Suspect]
     Indication: RHEUMATOID ARTHRITIS
     Route: 042
  2. PREDNISOLONE [Concomitant]
  3. ASPIRIN [Concomitant]
  4. FERROUS SULFATE TAB [Concomitant]
  5. FOLIC ACID [Concomitant]
  6. MELOXICAM [Concomitant]
  7. OMEPRAZOLE [Concomitant]
  8. PARACETAMOL [Concomitant]
  9. SIMVASTATIN [Concomitant]
  10. DUROGESIC PATCH [Concomitant]

REACTIONS (1)
  - DIVERTICULITIS [None]
